FAERS Safety Report 7846799-3 (Version None)
Quarter: 2011Q4

REPORT INFORMATION
  Report Type: 
  Country: None (occurrence: None)
  Receive Date: 20111025
  Receipt Date: 20111019
  Transmission Date: 20120403
  Serious: Yes (Life-Threatening, Hospitalization)
  Sender: FDA-Public Use
  Company Number: PHHY2011US10440

PATIENT
  Sex: Female

DRUGS (3)
  1. NEORAL [Suspect]
     Indication: RENAL TRANSPLANT
     Dosage: 150 MG, BID
     Route: 048
  2. REGLAN [Concomitant]
  3. NEORAL [Suspect]
     Dosage: 175 MG, BID
     Route: 048
     Dates: start: 20030728

REACTIONS (2)
  - DRUG HYPERSENSITIVITY [None]
  - NEUROLEPTIC MALIGNANT SYNDROME [None]
